FAERS Safety Report 5921880-4 (Version None)
Quarter: 2008Q4

REPORT INFORMATION
  Report Type: 
  Country: None (occurrence: None)
  Receive Date: 20081016
  Receipt Date: 20081016
  Transmission Date: 20090506
  Serious: Yes (Other)
  Sender: FDA-Public Use
  Company Number: None

PATIENT
  Age: 79 Year
  Sex: Female

DRUGS (1)
  1. SUCRALFATE [Suspect]
     Indication: ULCER
     Dosage: 1GM QID PO
     Route: 048
     Dates: start: 20080913, end: 20081007

REACTIONS (2)
  - EROSIVE OESOPHAGITIS [None]
  - PRODUCT QUALITY ISSUE [None]
